FAERS Safety Report 4438046-X (Version None)
Quarter: 2004Q3

REPORT INFORMATION
  Report Type: 
  Country: None (occurrence: None)
  Receive Date: 20040831
  Receipt Date: 20040507
  Transmission Date: 20050211
  Serious: No
  Sender: FDA-Public Use
  Company Number: US-GLAXOSMITHKLINE-A0510503A

PATIENT
  Sex: Female

DRUGS (1)
  1. WELLBUTRIN XL [Suspect]
     Indication: FIBROMYALGIA
     Route: 048

REACTIONS (3)
  - COUGH [None]
  - INSOMNIA [None]
  - URINARY INCONTINENCE [None]
